FAERS Safety Report 19378376 (Version 1)
Quarter: 2021Q2

REPORT INFORMATION
  Report Type: Spontaneous
  Country: CN (occurrence: CN)
  Receive Date: 20210605
  Receipt Date: 20210605
  Transmission Date: 20210717
  Serious: Yes (Other)
  Sender: FDA-Public Use
  Company Number: NVSC2021CN125131

PATIENT
  Age: 60 Year
  Sex: Male
  Weight: 80 kg

DRUGS (5)
  1. TICAGRELOR. [Concomitant]
     Active Substance: TICAGRELOR
     Indication: PLATELET AGGREGATION ABNORMAL
  2. ENTRESTO [Suspect]
     Active Substance: SACUBITRIL\VALSARTAN
     Indication: SYMPTOMATIC TREATMENT
     Dosage: 0.1 G, QD
     Route: 048
     Dates: start: 20210508, end: 20210510
  3. CRESTOR [Suspect]
     Active Substance: ROSUVASTATIN CALCIUM
     Indication: SYMPTOMATIC TREATMENT
     Dosage: 10 MG, QD
     Route: 048
     Dates: start: 20210504, end: 20210510
  4. CRESTOR [Suspect]
     Active Substance: ROSUVASTATIN CALCIUM
     Indication: LIPIDS
  5. TICAGRELOR. [Concomitant]
     Active Substance: TICAGRELOR
     Indication: SYMPTOMATIC TREATMENT
     Dosage: 90 MG, BID
     Route: 048
     Dates: start: 20210504, end: 20210517

REACTIONS (1)
  - Renal impairment [Recovering/Resolving]

NARRATIVE: CASE EVENT DATE: 20210510
